FAERS Safety Report 9256111 (Version 1)
Quarter: 2013Q2

REPORT INFORMATION
  Report Type: Spontaneous
  Country: US (occurrence: US)
  Receive Date: 20130425
  Receipt Date: 20130425
  Transmission Date: 20140414
  Serious: No
  Sender: FDA-Public Use
  Company Number: US-AMGEN-USASP2012049251

PATIENT
  Age: 65 Year
  Sex: Male

DRUGS (5)
  1. NEULASTA [Suspect]
     Indication: NEUTROPENIA
     Dosage: 6 MG, UNK
     Dates: start: 20120702
  2. CISPLATIN [Concomitant]
     Dosage: UNK
  3. CYTOXAN [Concomitant]
     Dosage: UNK
  4. ETOPOSIDE [Concomitant]
     Dosage: UNK
  5. DOXORUBICIN [Concomitant]
     Dosage: UNK

REACTIONS (1)
  - Neutrophil count abnormal [Unknown]
